FAERS Safety Report 18936800 (Version 1)
Quarter: 2021Q1

REPORT INFORMATION
  Report Type: Report from Study
  Country: US (occurrence: US)
  Receive Date: 20210225
  Receipt Date: 20210225
  Transmission Date: 20210420
  Serious: Yes (Other)
  Sender: FDA-Public Use
  Company Number: US-ASTRAZENECA-2021A068583

PATIENT
  Sex: Male

DRUGS (1)
  1. LYNPARZA [Suspect]
     Active Substance: OLAPARIB
     Indication: PANCREATIC CARCINOMA
     Route: 048

REACTIONS (6)
  - Carbohydrate antigen 19-9 increased [Unknown]
  - Skin mass [Unknown]
  - Pruritus [Unknown]
  - Product dose omission issue [Unknown]
  - Fatigue [Unknown]
  - Rash [Unknown]
